FAERS Safety Report 9283029 (Version 1)
Quarter: 2013Q2

REPORT INFORMATION
  Report Type: Spontaneous
  Country: US (occurrence: US)
  Receive Date: 20130510
  Receipt Date: 20130510
  Transmission Date: 20140414
  Serious: No
  Sender: FDA-Public Use
  Company Number: US-GLAXOSMITHKLINE-A0974235A

PATIENT
  Age: 63 Year
  Sex: Female
  Weight: 72.3 kg

DRUGS (13)
  1. TYKERB [Suspect]
     Indication: PRODUCT USED FOR UNKNOWN INDICATION
     Dosage: 1250MG PER DAY
     Route: 048
  2. OMEPRAZOLE [Concomitant]
  3. LEXAPRO [Concomitant]
  4. XELODA [Concomitant]
  5. CHLOROPHYLL [Concomitant]
  6. MORPHINE SULFATE [Concomitant]
  7. FENTANYL [Concomitant]
  8. MECLIZINE [Concomitant]
  9. LORAZEPAM [Concomitant]
  10. ALEVE [Concomitant]
  11. ECONAZOLE [Concomitant]
  12. ZOLPIDEM [Concomitant]
  13. PHENYTOIN [Concomitant]

REACTIONS (9)
  - Dizziness [Unknown]
  - Visual acuity reduced [Unknown]
  - Diarrhoea [Unknown]
  - Decreased appetite [Unknown]
  - Oral pain [Unknown]
  - Pruritus [Unknown]
  - Dry skin [Unknown]
  - Abdominal pain upper [Unknown]
  - Retching [Unknown]
